FAERS Safety Report 12323362 (Version 2)
Quarter: 2016Q2

REPORT INFORMATION
  Report Type: Spontaneous
  Country: US (occurrence: US)
  Receive Date: 20160502
  Receipt Date: 20160620
  Transmission Date: 20160815
  Serious: No
  Sender: FDA-Public Use
  Company Number: US-JNJFOC-20160412181

PATIENT
  Sex: Female
  Weight: 56.7 kg

DRUGS (10)
  1. ZOFRAN [Concomitant]
     Active Substance: ONDANSETRON HYDROCHLORIDE
     Indication: NAUSEA
     Route: 065
  2. PRILOSEC [Concomitant]
     Active Substance: OMEPRAZOLE MAGNESIUM
     Indication: DYSPEPSIA
     Route: 065
  3. HYDROCODONE [Concomitant]
     Active Substance: HYDROCODONE
     Indication: PAIN
     Route: 065
  4. SINGULAIR [Concomitant]
     Active Substance: MONTELUKAST SODIUM
     Indication: SINUS DISORDER
     Route: 065
  5. REMICADE [Suspect]
     Active Substance: INFLIXIMAB
     Indication: CROHN^S DISEASE
     Route: 042
     Dates: start: 2006
  6. LISINOPRIL. [Concomitant]
     Active Substance: LISINOPRIL
     Indication: BLOOD PRESSURE MEASUREMENT
     Route: 065
  7. IBUPROFEN. [Concomitant]
     Active Substance: IBUPROFEN
     Route: 065
  8. EFFEXOR [Concomitant]
     Active Substance: VENLAFAXINE HYDROCHLORIDE
     Indication: DEPRESSION
     Route: 065
  9. ACETAMINOPHEN. [Concomitant]
     Active Substance: ACETAMINOPHEN
     Route: 065
  10. PROMETHAZINE [Concomitant]
     Active Substance: PROMETHAZINE\PROMETHAZINE HYDROCHLORIDE
     Indication: NAUSEA
     Route: 065

REACTIONS (20)
  - Crohn^s disease [Unknown]
  - Nervousness [Not Recovered/Not Resolved]
  - Product use issue [Unknown]
  - Phonophobia [Not Recovered/Not Resolved]
  - Chronic sinusitis [Not Recovered/Not Resolved]
  - Stress [Not Recovered/Not Resolved]
  - Dysphagia [Not Recovered/Not Resolved]
  - Off label use [Unknown]
  - Muscular weakness [Not Recovered/Not Resolved]
  - Tremor [Not Recovered/Not Resolved]
  - Myalgia [Not Recovered/Not Resolved]
  - Insomnia [Not Recovered/Not Resolved]
  - Dysphonia [Not Recovered/Not Resolved]
  - Nausea [Recovering/Resolving]
  - Disturbance in attention [Not Recovered/Not Resolved]
  - Photophobia [Not Recovered/Not Resolved]
  - Headache [Not Recovered/Not Resolved]
  - Depression [Not Recovered/Not Resolved]
  - Eye pruritus [Not Recovered/Not Resolved]
  - Abnormal loss of weight [Recovering/Resolving]

NARRATIVE: CASE EVENT DATE: 2006
